FAERS Safety Report 7615756-4 (Version None)
Quarter: 2011Q3

REPORT INFORMATION
  Report Type: 
  Country: None (occurrence: None)
  Receive Date: 20110711
  Receipt Date: 20110627
  Transmission Date: 20111222
  Serious: Yes (Death, Hospitalization)
  Sender: FDA-Public Use
  Company Number: 2011AL000052

PATIENT
  Age: 77 Year
  Sex: Male

DRUGS (1)
  1. FOLOTYN [Suspect]
     Indication: MYCOSIS FUNGOIDES
     Dosage: 15 MG/M**2;QW;IV
     Route: 042
     Dates: start: 20110413, end: 20110413

REACTIONS (14)
  - DEPRESSED LEVEL OF CONSCIOUSNESS [None]
  - UNRESPONSIVE TO STIMULI [None]
  - PLEOCYTOSIS [None]
  - AGITATION [None]
  - PAIN IN EXTREMITY [None]
  - PRURITUS [None]
  - STAPHYLOCOCCAL SEPSIS [None]
  - CONFUSIONAL STATE [None]
  - EXCORIATION [None]
  - ERYTHEMA [None]
  - STOMATITIS [None]
  - RASH [None]
  - CSF PROTEIN INCREASED [None]
  - SKIN EXFOLIATION [None]
